FAERS Safety Report 13340412 (Version 10)
Quarter: 2020Q1

REPORT INFORMATION
  Report Type: Spontaneous
  Country: US (occurrence: US)
  Receive Date: 20170316
  Receipt Date: 20200124
  Transmission Date: 20200409
  Serious: No
  Sender: FDA-Public Use
  Company Number: US-PFIZER INC-2017109131

PATIENT
  Age: 51 Year
  Sex: Male
  Weight: 104 kg

DRUGS (2)
  1. LYRICA [Suspect]
     Active Substance: PREGABALIN
     Indication: NEURALGIA
     Dosage: 150 MG, FOUR TIMES A DAY
     Route: 048
  2. LYRICA [Suspect]
     Active Substance: PREGABALIN
     Indication: NEUROPATHY PERIPHERAL
     Dosage: 150 MG, FOUR TIMES A DAY (2 IN THE MORNING AND 2 AT NIGHT)
     Route: 048

REACTIONS (4)
  - Insomnia [Unknown]
  - Weight increased [Unknown]
  - Withdrawal syndrome [Unknown]
  - Drug ineffective [Unknown]
